FAERS Safety Report 8674224 (Version 3)
Quarter: 2012Q4

REPORT INFORMATION
  Report Type: 
  Country: US (occurrence: US)
  Receive Date: 20120719
  Receipt Date: 20120904
  Transmission Date: 20130627
  Serious: Yes (Other)
  Sender: FDA-Public Use
  Company Number: US-GLAXOSMITHKLINE-A0984596A

PATIENT
  Age: 61 Year
  Sex: Female

DRUGS (8)
  1. ADVAIR [Suspect]
     Indication: ASTHMA
     Dosage: 1PUFF Twice per day
     Route: 055
     Dates: start: 200411
  2. SINGULAIR [Concomitant]
  3. EVISTA [Concomitant]
     Indication: OSTEOPOROSIS PROPHYLAXIS
  4. PIROXICAM [Concomitant]
  5. PREVACID [Concomitant]
  6. CELEXA [Concomitant]
  7. MULTIVITAMIN [Concomitant]
  8. CALCIUM [Concomitant]

REACTIONS (2)
  - Asthma [Recovering/Resolving]
  - Product quality issue [Unknown]
